FAERS Safety Report 10960416 (Version 1)
Quarter: 2015Q1

REPORT INFORMATION
  Report Type: Spontaneous
  Country: US (occurrence: US)
  Receive Date: 20150327
  Receipt Date: 20150327
  Transmission Date: 20150721
  Serious: Yes (Other)
  Sender: FDA-Public Use
  Company Number: US-MERCK-1503USA010904

PATIENT
  Sex: Female

DRUGS (1)
  1. BELSOMRA [Suspect]
     Active Substance: SUVOREXANT
     Indication: INSOMNIA
     Dosage: ONE TABLET 10 MG/1 TIME
     Route: 048

REACTIONS (5)
  - Aphasia [Recovered/Resolved]
  - Movement disorder [Unknown]
  - Muscle spasms [Unknown]
  - Myalgia [Unknown]
  - Drug ineffective [Unknown]
